FAERS Safety Report 5358685-1 (Version None)
Quarter: 2007Q2

REPORT INFORMATION
  Report Type: 
  Country: None (occurrence: None)
  Receive Date: 20070615
  Receipt Date: 20070613
  Transmission Date: 20071010
  Serious: Yes (Other)
  Sender: FDA-Public Use
  Company Number: DE-BRISTOL-MYERS SQUIBB COMPANY-13772553

PATIENT
  Age: 56 Year
  Sex: Female

DRUGS (2)
  1. LYSODREN [Suspect]
     Indication: ADRENOCORTICAL CARCINOMA
  2. HYDROCORTISONE [Concomitant]
     Indication: ADRENOCORTICAL CARCINOMA

REACTIONS (5)
  - DIZZINESS [None]
  - LONG QT SYNDROME [None]
  - RASH [None]
  - SPEECH DISORDER [None]
  - VISUAL DISTURBANCE [None]
